FAERS Safety Report 5307618-2 (Version None)
Quarter: 2007Q2

REPORT INFORMATION
  Report Type: 
  Country: None (occurrence: None)
  Receive Date: 20070425
  Receipt Date: 20070413
  Transmission Date: 20071010
  Serious: Yes (Disabling, Other)
  Sender: FDA-Public Use
  Company Number: US-PFIZER INC-2007030084

PATIENT
  Sex: Female
  Weight: 100 kg

DRUGS (3)
  1. CHANTIX [Suspect]
     Indication: SMOKING CESSATION THERAPY
     Route: 048
     Dates: start: 20070410
  2. CHANTIX [Suspect]
  3. WELCHOL [Concomitant]

REACTIONS (7)
  - DISABILITY [None]
  - HYPERACUSIS [None]
  - MIGRAINE [None]
  - NAUSEA [None]
  - PHOTOPHOBIA [None]
  - SOMNOLENCE [None]
  - VISUAL DISTURBANCE [None]
